FAERS Safety Report 12467146 (Version 3)
Quarter: 2018Q3

REPORT INFORMATION
  Report Type: Spontaneous
  Country: US (occurrence: US)
  Receive Date: 20160615
  Receipt Date: 20180911
  Transmission Date: 20181010
  Serious: Yes (Other)
  Sender: FDA-Public Use
  Company Number: US-SA-2016SA108506

PATIENT
  Age: 78 Year
  Sex: Female

DRUGS (6)
  1. TOUJEO [Suspect]
     Active Substance: INSULIN GLARGINE
     Dosage: UNK UNK, QD
  2. LANTUS [Concomitant]
     Active Substance: INSULIN GLARGINE
     Indication: DIABETES MELLITUS
     Dosage: 34 UNITS AM, 8?14 UNITS PM
  3. INSULIN GLARGINE [Concomitant]
     Active Substance: INSULIN GLARGINE
     Dosage: UNK UNK, UNK
     Dates: end: 20160528
  4. BASAGLAR [Suspect]
     Active Substance: INSULIN GLARGINE
     Dosage: UNK UNK, UNK
  5. DIGOXIN. [Concomitant]
     Active Substance: DIGOXIN
     Dosage: UNK UNK, UNK
  6. TOUJEO [Suspect]
     Active Substance: INSULIN GLARGINE
     Indication: TYPE 2 DIABETES MELLITUS
     Dosage: 50 DF,QD
     Route: 065
     Dates: start: 20160528

REACTIONS (4)
  - Upper respiratory tract infection [Unknown]
  - Nasopharyngitis [Unknown]
  - Drug intolerance [Unknown]
  - Hypertension [Unknown]

NARRATIVE: CASE EVENT DATE: 20160606
